FAERS Safety Report 6342700-2 (Version None)
Quarter: 2009Q3

REPORT INFORMATION
  Report Type: 
  Country: None (occurrence: None)
  Receive Date: 20090908
  Receipt Date: 20080122
  Transmission Date: 20100115
  Serious: No
  Sender: FDA-Public Use
  Company Number: DK-ROCHE-504544

PATIENT
  Sex: Female
  Weight: 4.1 kg

DRUGS (5)
  1. TAMIFLU [Suspect]
     Indication: INFLUENZA
     Route: 064
     Dates: start: 20070330, end: 20070403
  2. 1 CONCOMITANT DRUG [Concomitant]
     Dosage: DRUG: PENTASE.
     Dates: start: 20070418, end: 20070518
  3. 1 CONCOMITANT DRUG [Concomitant]
     Dosage: DRUG: PENTASE.
     Dates: start: 20070626
  4. PREDNISOLONE [Concomitant]
     Dates: start: 20070418, end: 20070518
  5. PREDNISOLONE [Concomitant]
     Dates: start: 20070626

REACTIONS (2)
  - DRUG EXPOSURE DURING PREGNANCY [None]
  - NORMAL NEWBORN [None]
